FAERS Safety Report 15733033 (Version 1)
Quarter: 2018Q4

REPORT INFORMATION
  Report Type: Spontaneous
  Country: GB (occurrence: GB)
  Receive Date: 20181218
  Receipt Date: 20181218
  Transmission Date: 20190205
  Serious: Yes (Other)
  Sender: FDA-Public Use
  Company Number: GB-TEVA-2018-GB-987914

PATIENT
  Age: 33 Year
  Sex: Female
  Weight: 80.28 kg

DRUGS (1)
  1. AMOXICILLIN. [Suspect]
     Active Substance: AMOXICILLIN
     Indication: LOWER RESPIRATORY TRACT INFECTION
     Route: 048
     Dates: start: 20181115, end: 20181119

REACTIONS (3)
  - Oral candidiasis [Not Recovered/Not Resolved]
  - Oral pain [Unknown]
  - Chapped lips [Unknown]

NARRATIVE: CASE EVENT DATE: 20181117
